FAERS Safety Report 11592127 (Version 1)
Quarter: 2015Q4

REPORT INFORMATION
  Report Type: Spontaneous
  Country: TR (occurrence: TR)
  Receive Date: 20151005
  Receipt Date: 20151005
  Transmission Date: 20160304
  Serious: Yes (Death, Other)
  Sender: FDA-Public Use
  Company Number: PHHY2015TR117492

PATIENT
  Age: 49 Year
  Sex: Male

DRUGS (1)
  1. GLIVEC [Suspect]
     Active Substance: IMATINIB MESYLATE
     Indication: CHORDOMA
     Dosage: 800 MG, QD
     Route: 048

REACTIONS (6)
  - Product use issue [Unknown]
  - Cardiovascular insufficiency [Fatal]
  - Cholestasis [Unknown]
  - Malignant neoplasm progression [Unknown]
  - Chordoma [Unknown]
  - Hepatic failure [Fatal]
